FAERS Safety Report 8220677-2 (Version None)
Quarter: 2012Q1

REPORT INFORMATION
  Report Type: 
  Country: None (occurrence: None)
  Receive Date: 20120320
  Receipt Date: 20120307
  Transmission Date: 20120608
  Serious: Yes (Other)
  Sender: FDA-Public Use
  Company Number: US-ELI_LILLY_AND_COMPANY-US201203003166

PATIENT
  Age: 74 Year
  Sex: Female

DRUGS (4)
  1. CYMBALTA [Suspect]
     Indication: DEPRESSION
     Dosage: 30 MG, QD
     Dates: start: 20120301
  2. THYROID THERAPY [Concomitant]
     Dosage: UNK, UNKNOWN
  3. CELEBREX [Concomitant]
     Dosage: UNK, UNKNOWN
  4. LIPID MODIFYING AGENTS [Concomitant]
     Dosage: UNK, UNKNOWN

REACTIONS (2)
  - WRONG TECHNIQUE IN DRUG USAGE PROCESS [None]
  - OESOPHAGEAL CARCINOMA [None]
